FAERS Safety Report 4755104-0 (Version None)
Quarter: 2005Q3

REPORT INFORMATION
  Report Type: 
  Country: None (occurrence: None)
  Receive Date: 20050825
  Receipt Date: 20050812
  Transmission Date: 20060218
  Serious: Yes (Hospitalization)
  Sender: FDA-Public Use
  Company Number: 2005-02964

PATIENT
  Age: 51 Year
  Sex: Female

DRUGS (3)
  1. IBUPROFEN [Suspect]
     Indication: INFLUENZA
     Dosage: 200 - 400 MG, DAILY, ORAL
     Route: 048
     Dates: start: 20020201, end: 20020201
  2. LOZOL [Concomitant]
  3. LEVOTHYROXINE SODIUM [Concomitant]

REACTIONS (1)
  - CHOLANGITIS ACUTE [None]
